FAERS Safety Report 5237672-8 (Version None)
Quarter: 2007Q1

REPORT INFORMATION
  Report Type: 
  Country: None (occurrence: None)
  Receive Date: 20070214
  Receipt Date: 20070202
  Transmission Date: 20070707
  Serious: Yes (Hospitalization)
  Sender: FDA-Public Use
  Company Number: DE-ELI_LILLY_AND_COMPANY-DE200702000613

PATIENT
  Age: 20 Year
  Sex: Female

DRUGS (3)
  1. STRATTERA [Suspect]
     Indication: DISTURBANCE IN ATTENTION
     Route: 048
     Dates: start: 20060101, end: 20060101
  2. STRATTERA [Suspect]
     Dosage: 60 MG, DAILY (1/D)
     Route: 048
     Dates: start: 20060101, end: 20060101
  3. ORAL CONTRACEPTIVE NOS [Concomitant]
     Dosage: UNK, UNK
     Route: 048

REACTIONS (2)
  - BLISTER INFECTED [None]
  - LYMPHANGITIS [None]
